FAERS Safety Report 6293690-2 (Version None)
Quarter: 2009Q3

REPORT INFORMATION
  Report Type: 
  Country: None (occurrence: None)
  Receive Date: 20090730
  Receipt Date: 20090715
  Transmission Date: 20100115
  Serious: Yes (Hospitalization)
  Sender: FDA-Public Use
  Company Number: ALA_00330_2009

PATIENT
  Age: 56 Year
  Sex: Female

DRUGS (2)
  1. TRILYTE [Suspect]
     Indication: COLONOSCOPY
     Dosage: ( 4 LITERS ORAL)
     Route: 048
     Dates: start: 20090714, end: 20090714
  2. HYZAAR /01284801/ [Concomitant]

REACTIONS (5)
  - ABNORMAL BEHAVIOUR [None]
  - BLOOD MAGNESIUM DECREASED [None]
  - BLOOD POTASSIUM DECREASED [None]
  - BLOOD SODIUM DECREASED [None]
  - MENTAL STATUS CHANGES [None]
